FAERS Safety Report 14141739 (Version 1)
Quarter: 2017Q4

REPORT INFORMATION
  Report Type: Spontaneous
  Country: DZ (occurrence: DZ)
  Receive Date: 20171030
  Receipt Date: 20171030
  Transmission Date: 20180321
  Serious: Yes (Other)
  Sender: FDA-Public Use
  Company Number: DZ-ASTELLAS-2017US043488

PATIENT
  Age: 38 Year
  Sex: Male

DRUGS (3)
  1. PROGRAF [Suspect]
     Active Substance: TACROLIMUS\TACROLIMUS ANHYDROUS
     Indication: RENAL TRANSPLANT
     Dosage: UNK UNK, UNKNOWN FREQ.
     Route: 065
  2. MYCOPHENOLATE MOFETIL. [Suspect]
     Active Substance: MYCOPHENOLATE MOFETIL
     Indication: RENAL TRANSPLANT
     Dosage: UNK UNK, UNKNOWN FREQ.
     Route: 065
  3. ATG                                /00575401/ [Suspect]
     Active Substance: LAPINE T-LYMPHOCYTE IMMUNE GLOBULIN
     Indication: RENAL TRANSPLANT
     Dosage: UNK UNK, UNKNOWN FREQ.
     Route: 065

REACTIONS (9)
  - Coagulopathy [Unknown]
  - Urinoma [Unknown]
  - Urinary tract infection bacterial [Unknown]
  - Delayed graft function [Recovered/Resolved]
  - Disseminated cryptococcosis [Recovered/Resolved]
  - Arthritis [Unknown]
  - Renal tubular necrosis [Unknown]
  - Abdominal pain lower [Unknown]
  - Cytomegalovirus infection [Unknown]
